FAERS Safety Report 11102303 (Version 1)
Quarter: 2015Q2

REPORT INFORMATION
  Report Type: Spontaneous
  Country: US (occurrence: None)
  Receive Date: 20150507
  Receipt Date: 20150507
  Transmission Date: 20150821
  Serious: Yes (Other)
  Sender: FDA-Public Use
  Company Number: UCM201504-000296

PATIENT
  Age: 19 Year
  Sex: Female

DRUGS (2)
  1. TOPIRAMATE (TOPIRAMATE) (TOPIRAMATE) [Suspect]
     Active Substance: TOPIRAMATE
  2. LAMOTRIGINE (LAMOTRIGINE) (LAMOTRIGINE) [Suspect]
     Active Substance: LAMOTRIGINE

REACTIONS (2)
  - Splenic lesion [None]
  - Alexia [None]
